FAERS Safety Report 22117952 (Version 1)
Quarter: 2023Q1

REPORT INFORMATION
  Report Type: Spontaneous
  Country: US (occurrence: None)
  Receive Date: 20230321
  Receipt Date: 20230321
  Transmission Date: 20230418
  Serious: No
  Sender: FDA-Public Use
  Company Number: US-ROCHE-3215136

PATIENT
  Age: 61 Year
  Sex: Male

DRUGS (1)
  1. VABYSMO [Suspect]
     Active Substance: FARICIMAB-SVOA
     Indication: Diabetic retinal oedema
     Dosage: FREQUENCY: EVERY 2-3 MONTH?BEGAN CLINICAL TRIAL APPROX 2-3 YRS AGO- SEPT2022, THEN COMMERCIAL 07NOV2
     Route: 042

REACTIONS (3)
  - Off label use [Unknown]
  - Visual impairment [Unknown]
  - Cataract [Unknown]
